FAERS Safety Report 4931357-0 (Version None)
Quarter: 2006Q1

REPORT INFORMATION
  Report Type: 
  Country: None (occurrence: None)
  Receive Date: 20060228
  Receipt Date: 20060202
  Transmission Date: 20060701
  Serious: No
  Sender: FDA-Public Use
  Company Number: US_0506119607

PATIENT
  Age: 38 Year
  Sex: Male
  Weight: 126.4 kg

DRUGS (6)
  1. ZYPREXA [Suspect]
     Indication: SCHIZOPHRENIA
     Dosage: 20 MG DAILY (1/D) ORAL
     Route: 048
     Dates: start: 19980804, end: 20011030
  2. RISPERIDONE [Concomitant]
  3. TEGRETOL [Concomitant]
  4. HALCION [Concomitant]
  5. ALLOPURINOL [Concomitant]
  6. ZOCOR [Concomitant]

REACTIONS (8)
  - BLOOD CHOLESTEROL INCREASED [None]
  - COLITIS ISCHAEMIC [None]
  - DIABETES MELLITUS NON-INSULIN-DEPENDENT [None]
  - DIVERTICULUM [None]
  - GASTROINTESTINAL NECROSIS [None]
  - HAEMORRHOIDS [None]
  - HYPERTENSION [None]
  - RECTAL HAEMORRHAGE [None]
